FAERS Safety Report 10184154 (Version 2)
Quarter: 2014Q2

REPORT INFORMATION
  Report Type: Report from Study
  Country: DE (occurrence: DE)
  Receive Date: 20140520
  Receipt Date: 20140520
  Transmission Date: 20141212
  Serious: Yes (Hospitalization, Other)
  Sender: FDA-Public Use
  Company Number: DE-INCYTE CORPORATION-2014IN001209

PATIENT
  Sex: Female
  Weight: 80 kg

DRUGS (14)
  1. INCB018424 [Suspect]
     Indication: MYELOFIBROSIS
     Dosage: 20 MG, 2 DF, PER DAY
     Route: 048
     Dates: start: 20121031, end: 20121125
  2. INCB018424 [Suspect]
     Dosage: 20 MG, 2 DF, PER DAY
     Route: 048
     Dates: start: 20121201, end: 20130520
  3. INCB018424 [Suspect]
     Dosage: 20 MG, 2 DF, PER DAY
     Route: 048
     Dates: start: 20130526, end: 20130826
  4. INCB018424 [Suspect]
     Dosage: 20 MG, 1 DF PER DAY
     Route: 048
     Dates: start: 20130827, end: 20130906
  5. RED BLOOD CELLS, CONCENTRATED [Concomitant]
     Dosage: UNK
     Dates: start: 20121221, end: 20121221
  6. BISOPROLOL [Concomitant]
     Dates: start: 20121017
  7. RAMIPRIL PLUS [Concomitant]
     Dates: start: 20121017
  8. RAMIPRIL [Concomitant]
     Dates: start: 20121031
  9. EBRANTIL [Concomitant]
     Dosage: UNK
     Dates: start: 20121125, end: 20121125
  10. OXYGESIC [Concomitant]
     Dates: start: 20121205
  11. HALOPERIDOL [Concomitant]
     Dosage: UNK
     Dates: start: 20121205
  12. VERGENTAN [Concomitant]
     Dosage: UNK
     Dates: start: 20130521, end: 20130525
  13. BAYOTENSIN AKUT [Concomitant]
     Dates: start: 20130806
  14. MCP//METOCLOPRAMIDE [Concomitant]
     Indication: GASTROINTESTINAL DISORDER
     Dosage: UNK
     Dates: start: 20130917

REACTIONS (3)
  - Back pain [Recovered/Resolved]
  - Headache [Recovered/Resolved]
  - Depression [Recovering/Resolving]
